FAERS Safety Report 5871305-2 (Version None)
Quarter: 2008Q3

REPORT INFORMATION
  Report Type: 
  Country: None (occurrence: None)
  Receive Date: 20080905
  Receipt Date: 20080827
  Transmission Date: 20090109
  Serious: No
  Sender: FDA-Public Use
  Company Number: US-BAYER-200832272NA

PATIENT
  Age: 66 Year
  Sex: Male

DRUGS (1)
  1. LEVITRA [Suspect]
     Indication: PROSTATOMEGALY
     Dosage: UNIT DOSE: 20 MG

REACTIONS (11)
  - CHILLS [None]
  - CHOKING SENSATION [None]
  - DIZZINESS [None]
  - FEAR [None]
  - FLASHBACK [None]
  - FLUSHING [None]
  - HEADACHE [None]
  - HYPERHIDROSIS [None]
  - INSOMNIA [None]
  - NAUSEA [None]
  - THROAT TIGHTNESS [None]
